FAERS Safety Report 8435054-9 (Version None)
Quarter: 2012Q2

REPORT INFORMATION
  Report Type: 
  Country: None (occurrence: None)
  Receive Date: 20120608
  Receipt Date: 20120608
  Transmission Date: 20120825
  Serious: Yes (Other)
  Sender: FDA-Public Use
  Company Number: None

PATIENT
  Age: 33 Year
  Sex: Male
  Weight: 127.9144 kg

DRUGS (1)
  1. SUBOXONE [Suspect]
     Indication: SUBSTANCE ABUSE
     Dosage: 8/2MG 2X DAY SL
     Route: 060
     Dates: start: 20120603, end: 20120607

REACTIONS (7)
  - MALABSORPTION [None]
  - PRODUCT FORMULATION ISSUE [None]
  - SWOLLEN TONGUE [None]
  - FLUID INTAKE REDUCED [None]
  - ORAL PAIN [None]
  - HYPOPHAGIA [None]
  - STOMATITIS [None]
